FAERS Safety Report 5803000-X (Version None)
Quarter: 2008Q3

REPORT INFORMATION
  Report Type: 
  Country: None (occurrence: None)
  Receive Date: 20080708
  Receipt Date: 20080627
  Transmission Date: 20090109
  Serious: Yes (Other)
  Sender: FDA-Public Use
  Company Number: PR-ROCHE-573925

PATIENT
  Age: 30 Year
  Sex: Female

DRUGS (5)
  1. INVIRASE [Suspect]
     Indication: HIV INFECTION
     Route: 048
     Dates: start: 20080301
  2. VIRACEPT [Suspect]
     Indication: HIV INFECTION
     Route: 048
  3. FORTOVASE [Suspect]
     Indication: HIV INFECTION
     Route: 048
  4. COMBIVIR [Suspect]
     Indication: HIV INFECTION
     Route: 048
  5. GLUCOPHAGE [Concomitant]

REACTIONS (1)
  - ABORTION SPONTANEOUS [None]
